FAERS Safety Report 9328444 (Version 1)
Quarter: 2013Q2

REPORT INFORMATION
  Report Type: Spontaneous
  Country: US (occurrence: US)
  Receive Date: 20130604
  Receipt Date: 20130604
  Transmission Date: 20140414
  Serious: No
  Sender: FDA-Public Use
  Company Number: US-SANOFI-AVENTIS-2011SA066972

PATIENT
  Age: 79 Year
  Sex: Female

DRUGS (4)
  1. LANTUS [Suspect]
     Indication: TYPE 2 DIABETES MELLITUS
     Dosage: DOSE:12 UNIT(S)
     Route: 058
     Dates: start: 2007
  2. SOLOSTAR [Suspect]
     Indication: TYPE 2 DIABETES MELLITUS
     Dates: start: 2007
  3. HUMALOG [Suspect]
     Indication: TYPE 2 DIABETES MELLITUS
     Route: 065
  4. ANTIHYPERTENSIVES [Concomitant]

REACTIONS (11)
  - Dizziness [Not Recovered/Not Resolved]
  - Malaise [Not Recovered/Not Resolved]
  - Tremor [Not Recovered/Not Resolved]
  - Gait disturbance [Not Recovered/Not Resolved]
  - Balance disorder [Not Recovered/Not Resolved]
  - Muscular weakness [Not Recovered/Not Resolved]
  - Confusional state [Not Recovered/Not Resolved]
  - Local swelling [Not Recovered/Not Resolved]
  - Pain in extremity [Not Recovered/Not Resolved]
  - Blood glucose decreased [Unknown]
  - Blood glucose increased [Unknown]
